FAERS Safety Report 25498947 (Version 2)
Quarter: 2025Q3

REPORT INFORMATION
  Report Type: Spontaneous
  Country: EU (occurrence: EU)
  Receive Date: 20250701
  Receipt Date: 20250707
  Transmission Date: 20251021
  Serious: Yes (Hospitalization, Other)
  Sender: SANDOZ
  Company Number: EU-002147023-NVSC2022IT189527

PATIENT
  Age: 55 Year
  Sex: Female

DRUGS (32)
  1. BLINATUMOMAB [Suspect]
     Active Substance: BLINATUMOMAB
     Indication: Prophylaxis against graft versus host disease
     Dosage: 30 MILLIGRAM, QD (TAPERED DOSE)
     Route: 065
     Dates: start: 2018, end: 2018
  2. BLINATUMOMAB [Suspect]
     Active Substance: BLINATUMOMAB
     Indication: B-cell type acute leukaemia
     Route: 065
     Dates: start: 2020
  3. BLINATUMOMAB [Suspect]
     Active Substance: BLINATUMOMAB
     Indication: Philadelphia chromosome positive
  4. BUSULFAN [Suspect]
     Active Substance: BUSULFAN
     Indication: Cord blood transplant therapy
     Route: 065
     Dates: start: 201808, end: 201808
  5. CYCLOSPORINE [Suspect]
     Active Substance: CYCLOSPORINE
     Indication: B-cell type acute leukaemia
     Dosage: 15 MG, QD
     Route: 065
     Dates: end: 201901
  6. CYCLOSPORINE [Suspect]
     Active Substance: CYCLOSPORINE
     Indication: Prophylaxis against graft versus host disease
  7. CYCLOPHOSPHAMIDE [Suspect]
     Active Substance: CYCLOPHOSPHAMIDE
     Indication: B-cell type acute leukaemia
     Route: 065
     Dates: end: 201901
  8. CYCLOPHOSPHAMIDE [Suspect]
     Active Substance: CYCLOPHOSPHAMIDE
     Indication: Prophylaxis against graft versus host disease
  9. CYTARABINE [Suspect]
     Active Substance: CYTARABINE
     Indication: B-cell type acute leukaemia
     Route: 065
     Dates: start: 2018
  10. CYTARABINE [Suspect]
     Active Substance: CYTARABINE
     Indication: Philadelphia chromosome positive
  11. CYTARABINE [Suspect]
     Active Substance: CYTARABINE
     Indication: B-cell type acute leukaemia
     Route: 065
     Dates: start: 2018
  12. DASATINIB [Suspect]
     Active Substance: DASATINIB
     Indication: B-cell type acute leukaemia
     Route: 065
     Dates: start: 2018, end: 2018
  13. DASATINIB [Suspect]
     Active Substance: DASATINIB
     Indication: Philadelphia chromosome positive
  14. FLUDARABINE [Suspect]
     Active Substance: FLUDARABINE PHOSPHATE
     Indication: Philadelphia chromosome positive
     Route: 065
     Dates: start: 201808, end: 201808
  15. FLUDARABINE [Suspect]
     Active Substance: FLUDARABINE PHOSPHATE
     Indication: Cord blood transplant therapy
  16. IMATINIB [Suspect]
     Active Substance: IMATINIB
     Indication: Philadelphia positive acute lymphocytic leukaemia
     Route: 065
  17. ICLUSIG [Suspect]
     Active Substance: PONATINIB HYDROCHLORIDE
     Dosage: 15 MG, QD
     Route: 065
     Dates: start: 2020
  18. ICLUSIG [Suspect]
     Active Substance: PONATINIB HYDROCHLORIDE
     Indication: B-cell type acute leukaemia
     Dosage: 30 MG, QD
     Route: 065
     Dates: start: 2018, end: 2018
  19. ICLUSIG [Suspect]
     Active Substance: PONATINIB HYDROCHLORIDE
     Dosage: 45 MG, QD
     Route: 065
     Dates: start: 2018, end: 2019
  20. ICLUSIG [Suspect]
     Active Substance: PONATINIB HYDROCHLORIDE
     Indication: Philadelphia chromosome positive
     Route: 065
     Dates: start: 201812
  21. ICLUSIG [Suspect]
     Active Substance: PONATINIB HYDROCHLORIDE
     Route: 065
     Dates: start: 201812, end: 201911
  22. MITOXANTRONE HYDROCHLORIDE [Suspect]
     Active Substance: MITOXANTRONE HYDROCHLORIDE
     Indication: Philadelphia chromosome positive
     Route: 065
     Dates: start: 2018
  23. MITOXANTRONE HYDROCHLORIDE [Suspect]
     Active Substance: MITOXANTRONE HYDROCHLORIDE
     Indication: B-cell type acute leukaemia
  24. MYCOPHENOLIC ACID [Suspect]
     Active Substance: MYCOPHENOLIC ACID
     Indication: Cord blood transplant therapy
     Route: 065
     Dates: end: 201901
  25. MYCOPHENOLIC ACID [Suspect]
     Active Substance: MYCOPHENOLIC ACID
     Indication: Prophylaxis against graft versus host disease
     Route: 065
     Dates: start: 2020
  26. PONATINIB [Suspect]
     Active Substance: PONATINIB
     Dosage: 15 MILLIGRAM, QD
     Route: 065
     Dates: start: 2020
  27. PONATINIB [Suspect]
     Active Substance: PONATINIB
     Indication: B-cell type acute leukaemia
     Dosage: 30 MILLIGRAM, QD (TAPERED DOSE)
     Route: 065
     Dates: start: 201808, end: 201808
  28. PONATINIB [Suspect]
     Active Substance: PONATINIB
     Indication: Philadelphia chromosome positive
     Dosage: 45 MG, QD
     Route: 065
     Dates: start: 2018, end: 2018
  29. PONATINIB [Suspect]
     Active Substance: PONATINIB
     Route: 065
     Dates: start: 201812, end: 201911
  30. THIOTEPA [Suspect]
     Active Substance: THIOTEPA
     Indication: Cord blood transplant therapy
     Route: 065
     Dates: end: 201911
  31. THIOTEPA [Suspect]
     Active Substance: THIOTEPA
     Route: 065
     Dates: start: 201808, end: 201808
  32. VINCRISTINE [Suspect]
     Active Substance: VINCRISTINE
     Indication: Philadelphia positive acute lymphocytic leukaemia
     Route: 065

REACTIONS (5)
  - Haemophagocytic lymphohistiocytosis [Recovered/Resolved]
  - Acute kidney injury [Unknown]
  - Haematotoxicity [Unknown]
  - Drug ineffective [Unknown]
  - Therapeutic response decreased [Unknown]

NARRATIVE: CASE EVENT DATE: 20180101
